FAERS Safety Report 7339901-3 (Version None)
Quarter: 2011Q1

REPORT INFORMATION
  Report Type: 
  Country: None (occurrence: None)
  Receive Date: 20110228
  Receipt Date: 20110210
  Transmission Date: 20110831
  Serious: Yes (Hospitalization, Other)
  Sender: FDA-Public Use
  Company Number: 013706

PATIENT
  Sex: Male

DRUGS (3)
  1. VALPROATE SODIUM [Concomitant]
  2. KEPPRA [Suspect]
     Indication: EPILEPSY
     Dosage: 1000 MG BID; INTRAVENOUS (NOT OTHERWISE SPECIFIED)
     Route: 042
     Dates: start: 20100527
  3. CIPRAMIL [Concomitant]

REACTIONS (3)
  - ENCEPHALOPATHY [None]
  - ELECTROENCEPHALOGRAM ABNORMAL [None]
  - SOMNOLENCE [None]
